FAERS Safety Report 24125587 (Version 1)
Quarter: 2024Q3

REPORT INFORMATION
  Report Type: Spontaneous
  Country: US (occurrence: US)
  Receive Date: 20240723
  Receipt Date: 20240723
  Transmission Date: 20241017
  Serious: No
  Sender: IPSEN
  Company Number: US-IPSEN Group, Research and Development-2024-14087

PATIENT
  Age: 68 Year
  Sex: Female

DRUGS (4)
  1. DYSPORT [Suspect]
     Active Substance: ABOBOTULINUMTOXINA
     Indication: Skin wrinkling
     Dosage: 10 UNITS INTO THE PROCERUS, 30 UNITS IN RIGHT CORRUGATOR, 20 UNITS IN LEFT CORRUGATOR
     Route: 065
     Dates: start: 20240315, end: 20240315
  2. SYNTHROID [Concomitant]
     Active Substance: LEVOTHYROXINE SODIUM
  3. ZOLOFT [Concomitant]
     Active Substance: SERTRALINE HYDROCHLORIDE
  4. BAYER ASPIRIN [Concomitant]
     Active Substance: ASPIRIN

REACTIONS (5)
  - Headache [Not Recovered/Not Resolved]
  - Injection site mass [Not Recovered/Not Resolved]
  - Drug ineffective [Unknown]
  - Prescribed overdose [Unknown]
  - Product preparation error [Unknown]

NARRATIVE: CASE EVENT DATE: 20240101
